FAERS Safety Report 12287479 (Version 1)
Quarter: 2016Q2

REPORT INFORMATION
  Report Type: Spontaneous
  Country: US (occurrence: US)
  Receive Date: 20160420
  Receipt Date: 20160420
  Transmission Date: 20160815
  Serious: Yes (Other)
  Sender: FDA-Public Use
  Company Number: ADR-2015-00944

PATIENT
  Age: 64 Year
  Sex: Female

DRUGS (2)
  1. BACLOFEN. [Suspect]
     Active Substance: BACLOFEN
     Dosage: 0.465 MCG/DAY
     Route: 037
     Dates: start: 20150327
  2. DILAUDID [Suspect]
     Active Substance: HYDROMORPHONE HYDROCHLORIDE
     Dosage: 0.077 MG/DAY
     Route: 037
     Dates: start: 20150327

REACTIONS (3)
  - Medical device discomfort [Recovered/Resolved]
  - Pain [Recovered/Resolved]
  - Medical device site extravasation [Recovered/Resolved]
